FAERS Safety Report 7331930-9 (Version None)
Quarter: 2011Q1

REPORT INFORMATION
  Report Type: 
  Country: None (occurrence: None)
  Receive Date: 20110304
  Receipt Date: 20091007
  Transmission Date: 20110831
  Serious: Yes (Other)
  Sender: FDA-Public Use
  Company Number: US-PFIZER INC-2009277513

PATIENT
  Sex: Male
  Weight: 85 kg

DRUGS (6)
  1. ZONISAMIDE [Concomitant]
     Dosage: 100MG, TWO IN MORNING AND FOUR IN EVENING
     Route: 048
  2. TRETINOIN [Concomitant]
     Dosage: UNK
  3. DILANTIN [Suspect]
     Indication: COMPLEX PARTIAL SEIZURES
     Dosage: 100 MG, 2X/DAY
     Route: 048
  4. RISPERIDONE [Concomitant]
     Dosage: 1MG, TWO IN EVENING
     Route: 048
  5. FLUNISOLIDE [Concomitant]
     Route: 045
  6. TOPIRAMATE [Concomitant]
     Dosage: 100MG, TWO IN MORNING AND FOUR IN EVENING
     Route: 048

REACTIONS (3)
  - SOMNOLENCE [None]
  - ANTICONVULSANT DRUG LEVEL INCREASED [None]
  - CONVULSION [None]
